FAERS Safety Report 4455880-0 (Version None)
Quarter: 2004Q3

REPORT INFORMATION
  Report Type: 
  Country: None (occurrence: None)
  Receive Date: 20040922
  Receipt Date: 20031023
  Transmission Date: 20050211
  Serious: Yes (Hospitalization, Other)
  Sender: FDA-Public Use
  Company Number: NL-MERCK-0310NLD00020

PATIENT
  Age: 49 Year
  Sex: Female

DRUGS (10)
  1. ASPIRIN CALCIUM [Concomitant]
     Route: 048
  2. ATORVASTATIN CALCIUM [Suspect]
     Indication: TYPE IIA HYPERLIPIDAEMIA
     Route: 048
     Dates: start: 20020101, end: 20031029
  3. BISOPROLOL FUMARATE [Concomitant]
     Route: 048
  4. ZETIA [Suspect]
     Indication: TYPE IIA HYPERLIPIDAEMIA
     Route: 048
     Dates: start: 20030920, end: 20031023
  5. ZETIA [Suspect]
     Route: 048
     Dates: start: 20031124, end: 20040126
  6. HYDROCHLOROTHIAZIDE [Concomitant]
     Route: 048
  7. LEVOTHYROXINE SODIUM [Concomitant]
     Route: 048
  8. METFORMIN [Concomitant]
     Indication: DIABETES MELLITUS NON-INSULIN-DEPENDENT
     Route: 048
  9. PERINDOPRIL ERBUMINE [Concomitant]
     Route: 048
  10. TOLBUTAMIDE [Concomitant]
     Indication: DIABETES MELLITUS NON-INSULIN-DEPENDENT
     Route: 048

REACTIONS (2)
  - MUSCLE DISORDER [None]
  - RHABDOMYOLYSIS [None]
